FAERS Safety Report 10703000 (Version 1)
Quarter: 2015Q1

REPORT INFORMATION
  Report Type: Spontaneous
  Country: US (occurrence: US)
  Receive Date: 20150111
  Receipt Date: 20150111
  Transmission Date: 20150721
  Serious: No
  Sender: FDA-Public Use
  Company Number: US-ASTRAZENECA-2014SE83051

PATIENT
  Sex: Female

DRUGS (2)
  1. BRILINTA [Suspect]
     Active Substance: TICAGRELOR
     Route: 048
  2. CARDIOLOGY MEDICINES [Concomitant]

REACTIONS (3)
  - Abdominal distension [Unknown]
  - Flatulence [Unknown]
  - Muscle spasms [Unknown]
